FAERS Safety Report 16867137 (Version 1)
Quarter: 2019Q3

REPORT INFORMATION
  Report Type: Spontaneous
  Country: FR (occurrence: FR)
  Receive Date: 20190930
  Receipt Date: 20190930
  Transmission Date: 20191005
  Serious: Yes (Other)
  Sender: FDA-Public Use
  Company Number: FR-MYLANLABS-2019M1088343

PATIENT
  Age: 35 Year
  Sex: Male
  Weight: 90 kg

DRUGS (3)
  1. SUFENTANIL                         /00723502/ [Suspect]
     Active Substance: SUFENTANIL CITRATE
     Indication: SPINAL ANAESTHESIA
     Dosage: 5 MICROGRAM
     Dates: start: 20190918
  2. BUPIVACAINE MYLAN 5 MG/ML, SOLUTION FOR INJECTION IN VIAL [Suspect]
     Active Substance: BUPIVACAINE
     Indication: SPINAL ANAESTHESIA
     Dosage: UNK
  3. BUPIVACAINE MYLAN 20 MG/4 ML, SOLUTION FOR INJECTION [Suspect]
     Active Substance: BUPIVACAINE
     Indication: SPINAL ANAESTHESIA
     Dosage: 10 MILLIGRAM, 20 MG/4 ML
     Route: 037
     Dates: start: 20190918

REACTIONS (1)
  - Drug ineffective [Unknown]

NARRATIVE: CASE EVENT DATE: 201909
